FAERS Safety Report 5824813-4 (Version None)
Quarter: 2008Q3

REPORT INFORMATION
  Report Type: 
  Country: None (occurrence: None)
  Receive Date: 20080728
  Receipt Date: 20080718
  Transmission Date: 20090109
  Serious: Yes (Death)
  Sender: FDA-Public Use
  Company Number: FR-PFIZER INC-2008060156

PATIENT
  Sex: Female

DRUGS (4)
  1. CELEBREX [Suspect]
     Route: 048
  2. FUROSEMIDE [Concomitant]
     Route: 048
  3. AMIODARONE [Concomitant]
     Dosage: TEXT:1 DOSE DAILY-FREQ:5 DAYS PER WEEK
     Route: 048
  4. ZOPICLONE [Concomitant]
     Route: 048

REACTIONS (10)
  - ALANINE AMINOTRANSFERASE INCREASED [None]
  - ARTERIAL INSUFFICIENCY [None]
  - ARTHRITIS [None]
  - ASPARTATE AMINOTRANSFERASE INCREASED [None]
  - BLOOD SODIUM DECREASED [None]
  - CONFUSIONAL STATE [None]
  - GENERAL PHYSICAL HEALTH DETERIORATION [None]
  - SEPTIC SHOCK [None]
  - SKIN ULCER [None]
  - STREPTOCOCCAL INFECTION [None]
